FAERS Safety Report 8143557-X (Version None)
Quarter: 2012Q1

REPORT INFORMATION
  Report Type: 
  Country: None (occurrence: None)
  Receive Date: 20120217
  Receipt Date: 20111103
  Transmission Date: 20120608
  Serious: No
  Sender: FDA-Public Use
  Company Number: US-GLAXOSMITHKLINE-A0942537A

PATIENT
  Sex: Male

DRUGS (2)
  1. DILTIAZEM HCL [Suspect]
     Indication: PRODUCT USED FOR UNKNOWN INDICATION
  2. VOTRIENT [Suspect]
     Indication: RENAL CANCER
     Dosage: 800MG PER DAY

REACTIONS (5)
  - HEART RATE DECREASED [None]
  - DEVICE MALFUNCTION [None]
  - CONSTIPATION [None]
  - PAIN IN EXTREMITY [None]
  - HYPERTENSION [None]
